FAERS Safety Report 19431511 (Version 1)
Quarter: 2021Q2

REPORT INFORMATION
  Report Type: Spontaneous
  Country: US (occurrence: US)
  Receive Date: 20210617
  Receipt Date: 20210617
  Transmission Date: 20210717
  Serious: Yes (Other)
  Sender: FDA-Public Use
  Company Number: US-MYLANLABS-2021M1035249

PATIENT
  Sex: Female

DRUGS (2)
  1. RAPAMYCIN [Suspect]
     Active Substance: SIROLIMUS
     Indication: ANGIOFIBROMA
     Dosage: 1 MILLILITER, BID
     Route: 061
  2. EVEROLIMUS. [Suspect]
     Active Substance: EVEROLIMUS
     Indication: ANGIOFIBROMA
     Dosage: UNK
     Route: 065

REACTIONS (2)
  - Laboratory test interference [Unknown]
  - Off label use [Unknown]
